FAERS Safety Report 21887506 (Version 5)
Quarter: 2023Q2

REPORT INFORMATION
  Report Type: Spontaneous
  Country: US (occurrence: US)
  Receive Date: 20230120
  Receipt Date: 20230426
  Transmission Date: 20230721
  Serious: No
  Sender: FDA-Public Use
  Company Number: US-BRISTOL-MYERS SQUIBB COMPANY-2023-006483

PATIENT
  Age: 45 Year
  Sex: Female

DRUGS (2)
  1. SPRYCEL [Suspect]
     Active Substance: DASATINIB
     Indication: Chronic myeloid leukaemia
     Route: 048
     Dates: start: 20221214
  2. ESTRADIOL [ESTRADIOL CIPIONATE] [Concomitant]
     Indication: Product used for unknown indication

REACTIONS (9)
  - Rash [Recovering/Resolving]
  - Pruritus [Unknown]
  - Mental status changes [Unknown]
  - Erythema [Unknown]
  - Ear discomfort [Unknown]
  - Hypoacusis [Unknown]
  - Alopecia [Unknown]
  - Skin irritation [Unknown]
  - Folliculitis [Unknown]
